FAERS Safety Report 9429156 (Version 2)
Quarter: 2013Q3

REPORT INFORMATION
  Report Type: Spontaneous
  Country: JP (occurrence: JP)
  Receive Date: 20130730
  Receipt Date: 20130805
  Transmission Date: 20140515
  Serious: Yes (Other)
  Sender: FDA-Public Use
  Company Number: JP-VERTEX PHARMACEUTICALS INC-2013-008364

PATIENT
  Age: 67 Year
  Sex: Female

DRUGS (9)
  1. TELAVIC [Suspect]
     Indication: CHRONIC HEPATITIS C
     Dosage: 1500 MG, QD
     Route: 048
     Dates: start: 20130610, end: 20130715
  2. PEGINTERFERON ALFA-2B [Suspect]
     Indication: CHRONIC HEPATITIS C
     Dosage: 1.43 ?G/KG
     Route: 058
     Dates: start: 20130610, end: 20130708
  3. RIBAVIRIN [Suspect]
     Indication: CHRONIC HEPATITIS C
     Dosage: 400 MG, QD
     Route: 048
     Dates: start: 20130610, end: 20130715
  4. BIOTIN [Concomitant]
     Dosage: 3 DF, QD
     Route: 048
     Dates: end: 20130720
  5. ALFAROL [Concomitant]
     Dosage: 1 ?G, UNK
     Route: 048
     Dates: start: 20130222, end: 20130720
  6. LOBU [Concomitant]
     Dosage: 60 MG, PRN
     Route: 048
     Dates: start: 20130610, end: 20130715
  7. MUCOSTA [Concomitant]
     Dosage: 100 MG, QD
     Route: 048
     Dates: start: 20130610, end: 20130715
  8. PARIET [Concomitant]
     Dosage: 10 MG, QD
     Route: 048
     Dates: start: 20130611, end: 20130719
  9. DEPAS [Concomitant]
     Dosage: 0.5 MG, QD
     Route: 048
     Dates: start: 20130708, end: 20130719

REACTIONS (3)
  - Convulsion [Recovered/Resolved]
  - Disorientation [Recovered/Resolved]
  - Pyelonephritis acute [Recovered/Resolved]
